FAERS Safety Report 11283113 (Version 1)
Quarter: 2015Q3

REPORT INFORMATION
  Report Type: Spontaneous
  Country: US (occurrence: None)
  Receive Date: 20150717
  Receipt Date: 20150717
  Transmission Date: 20151125
  Serious: Yes (Life-Threatening, Disabling)
  Sender: FDA-Public Use
  Company Number: None

PATIENT
  Age: 28 Month
  Sex: Female
  Weight: 54.43 kg

DRUGS (5)
  1. ASPRIN [Concomitant]
     Active Substance: ASPIRIN
  2. IBUPROFEN. [Concomitant]
     Active Substance: IBUPROFEN
  3. RIBAVIRIN. [Suspect]
     Active Substance: RIBAVIRIN
     Indication: HEPATITIS C
  4. SUBUTEX [Concomitant]
     Active Substance: BUPRENORPHINE HYDROCHLORIDE
  5. INTERFERON ALFA NOS [Suspect]
     Active Substance: INTERFERON ALFA-2A OR INTERFERON ALFA-2B
     Indication: HEPATITIS C
     Dosage: PEG INTERFERON AND RIBIVIRAN   5 TIMES DAILY  GIVEN INTO/UNDER THE SKIN

REACTIONS (18)
  - Skin disorder [None]
  - Haemorrhage [None]
  - Lymphadenopathy [None]
  - Headache [None]
  - Hypophagia [None]
  - Hallucination [None]
  - Body height decreased [None]
  - Arthralgia [None]
  - Fatigue [None]
  - Suicidal ideation [None]
  - Palpitations [None]
  - Weight decreased [None]
  - Nausea [None]
  - Oral disorder [None]
  - Vision blurred [None]
  - Myocardial infarction [None]
  - Homicidal ideation [None]
  - Memory impairment [None]
